FAERS Safety Report 18399034 (Version 2)
Quarter: 2021Q1

REPORT INFORMATION
  Report Type: Spontaneous
  Country: US (occurrence: US)
  Receive Date: 20201019
  Receipt Date: 20210112
  Transmission Date: 20210419
  Serious: No
  Sender: FDA-Public Use
  Company Number: US-CIRCASSIA PHARMACEUTICALS INC-2020US005676

PATIENT

DRUGS (2)
  1. BOTOX [Concomitant]
     Active Substance: ONABOTULINUMTOXINA
     Indication: BLEPHAROSPASM
     Dosage: IN THE HEAD, ONCE EVERY 3 MONTHS
     Route: 065
  2. DUAKLIR PRESSAIR [Suspect]
     Active Substance: ACLIDINIUM BROMIDE\FORMOTEROL FUMARATE
     Indication: CHRONIC OBSTRUCTIVE PULMONARY DISEASE
     Dosage: TWO PUFFS BY MOUTH ONCE DAILY
     Dates: start: 2020

REACTIONS (3)
  - Dysphonia [Not Recovered/Not Resolved]
  - Dry mouth [Not Recovered/Not Resolved]
  - Incorrect dose administered [Unknown]

NARRATIVE: CASE EVENT DATE: 2020
